FAERS Safety Report 18776527 (Version 1)
Quarter: 2021Q1

REPORT INFORMATION
  Report Type: Spontaneous
  Country: NL (occurrence: NL)
  Receive Date: 20210122
  Receipt Date: 20210122
  Transmission Date: 20210419
  Serious: Yes (Other)
  Sender: FDA-Public Use
  Company Number: NL-MYLANLABS-2021M1003600

PATIENT
  Sex: Male

DRUGS (7)
  1. BRINZOLAMIDE [Concomitant]
     Active Substance: BRINZOLAMIDE
     Dosage: EYE DROPS, 10 MG / ML (MILLIGRAM PER MILLILITER)
  2. METFORMINE                         /00082701/ [Concomitant]
     Active Substance: METFORMIN HYDROCHLORIDE
     Dosage: TABLET, 850 MG (MILLIGRAM)
  3. FLUTICASON [Concomitant]
     Active Substance: FLUTICASONE
     Dosage: INHALATION POWDER, 250 ?G / DOSE (MICROGRAM PER DOSE)
  4. INSULINE                           /01223401/ [Concomitant]
     Active Substance: INSULIN NOS
     Dosage: INJECTION FLUID, 100 UNITS / ML (UNITS PER MILLILITER)
  5. TAMSULOSIN [Suspect]
     Active Substance: TAMSULOSIN
     Indication: BENIGN PROSTATIC HYPERPLASIA
     Dosage: 1X PER DAY 1 PIECE
     Dates: start: 20200205
  6. PRAVASTATINE                       /00880401/ [Concomitant]
     Active Substance: PRAVASTATIN
     Dosage: TABLET, 40 MG (MILLIGRAM)
  7. TAMSULOSIN [Suspect]
     Active Substance: TAMSULOSIN
     Indication: POLLAKIURIA

REACTIONS (2)
  - Retinal detachment [Not Recovered/Not Resolved]
  - Visual impairment [Not Recovered/Not Resolved]
